FAERS Safety Report 6892950-1 (Version None)
Quarter: 2010Q3

REPORT INFORMATION
  Report Type: 
  Country: None (occurrence: None)
  Receive Date: 20100731
  Receipt Date: 20081125
  Transmission Date: 20110219
  Serious: No
  Sender: FDA-Public Use
  Company Number: US-PFIZER INC-2008101069

PATIENT
  Sex: Female

DRUGS (7)
  1. NORVASC [Suspect]
  2. LISINOPRIL [Suspect]
  3. LIPITOR [Suspect]
  4. RANIBIZUMAB [Suspect]
  5. LASIX [Suspect]
  6. POTASSIUM [Suspect]
  7. DEFERASIROX [Suspect]

REACTIONS (2)
  - EYE PRURITUS [None]
  - HEADACHE [None]
